FAERS Safety Report 20930815 (Version 6)
Quarter: 2024Q3

REPORT INFORMATION
  Report Type: Spontaneous
  Country: IT (occurrence: IT)
  Receive Date: 20220608
  Receipt Date: 20240703
  Transmission Date: 20241017
  Serious: Yes (Other)
  Sender: SANOFI AVENTIS
  Company Number: IT-SANOFI-01118406

PATIENT
  Age: 55 Year
  Sex: Male

DRUGS (13)
  1. APIDRA SOLOSTAR [Suspect]
     Active Substance: INSULIN GLULISINE
     Indication: Diabetes mellitus
     Dosage: 9 UNITS IN THE MORNING, 14-16 UNITS IN THE AFTERNOON, 10-12 UNITS IN THE EVENING
     Route: 058
     Dates: start: 202010
  2. TOUJEO [Suspect]
     Active Substance: INSULIN GLARGINE
     Indication: Diabetes mellitus
     Dosage: 16 U, QD
  3. TOUJEO [Suspect]
     Active Substance: INSULIN GLARGINE
     Dosage: 18 U, QD (PER DAY)
  4. TOUJEO [Suspect]
     Active Substance: INSULIN GLARGINE
     Dosage: 24 IU QD
  5. BARACLUDE [Concomitant]
     Active Substance: ENTECAVIR
     Indication: Hepatitis B
     Dosage: UNK
     Dates: start: 202010
  6. BARACLUDE [Concomitant]
     Active Substance: ENTECAVIR
     Indication: Liver disorder
  7. DURETIC [Concomitant]
  8. AMLODIPINE BESYLATE\OLMESARTAN MEDOXOMIL [Concomitant]
     Active Substance: AMLODIPINE BESYLATE\OLMESARTAN MEDOXOMIL
     Indication: Hypertension
     Dosage: UNK
  9. AMLODIPINE BESYLATE\OLMESARTAN MEDOXOMIL [Concomitant]
     Active Substance: AMLODIPINE BESYLATE\OLMESARTAN MEDOXOMIL
     Indication: Hypertension
     Dosage: UNK
  10. VITAMIN D NOS [Suspect]
     Active Substance: CHOLECALCIFEROL\ERGOCALCIFEROL
     Route: 048
  11. TADALAFIL [Concomitant]
     Active Substance: TADALAFIL
     Indication: Benign prostatic hyperplasia
  12. QUANTICO [Concomitant]
     Indication: Temporomandibular pain and dysfunction syndrome
     Dosage: 60 MG AS NEEDED
  13. AMLODIPINE\INDAPAMIDE\PERINDOPRIL [Concomitant]
     Active Substance: AMLODIPINE\INDAPAMIDE\PERINDOPRIL
     Indication: Hypertension
     Dosage: 8/2.5/10 MG
     Route: 048

REACTIONS (13)
  - Haemorrhage [Unknown]
  - Somnolence [Unknown]
  - Fear of injection [Not Recovered/Not Resolved]
  - Injection site discomfort [Recovered/Resolved]
  - Injection site haemorrhage [Unknown]
  - Confusional state [Unknown]
  - Injection site pain [Recovered/Resolved]
  - Device leakage [Unknown]
  - Hyperglycaemia [Recovered/Resolved]
  - Drug hypersensitivity [Unknown]
  - Blood glucose increased [Unknown]
  - Hypoglycaemia [Recovered/Resolved]
  - Product storage error [Unknown]

NARRATIVE: CASE EVENT DATE: 20240101
